FAERS Safety Report 17286694 (Version 8)
Quarter: 2022Q3

REPORT INFORMATION
  Report Type: Report from Study
  Country: US (occurrence: US)
  Receive Date: 20200119
  Receipt Date: 20220627
  Transmission Date: 20221027
  Serious: Yes (Other)
  Sender: FDA-Public Use
  Company Number: NVSC2020US004441

PATIENT
  Age: 58 Year
  Sex: Female

DRUGS (2)
  1. ENTRESTO [Suspect]
     Active Substance: SACUBITRIL\VALSARTAN
     Indication: Cardiac failure
     Dosage: 1 DOSAGE FORM, BID(49/51 MG)
     Route: 048
     Dates: start: 201911
  2. ENTRESTO [Suspect]
     Active Substance: SACUBITRIL\VALSARTAN
     Dosage: 1 DOSAGE FORM, BID (24/26 MG)
     Route: 048
     Dates: start: 201912

REACTIONS (8)
  - Fallot^s tetralogy [Unknown]
  - Hypoxia [Unknown]
  - Dyspnoea [Unknown]
  - Fatigue [Unknown]
  - Sleep disorder [Recovered/Resolved]
  - Malaise [Unknown]
  - Nausea [Not Recovered/Not Resolved]
  - Hypotension [Unknown]

NARRATIVE: CASE EVENT DATE: 20191201
